FAERS Safety Report 6540628-6 (Version None)
Quarter: 2010Q1

REPORT INFORMATION
  Report Type: 
  Country: None (occurrence: None)
  Receive Date: 20100118
  Receipt Date: 20100107
  Transmission Date: 20100710
  Serious: Yes (Other)
  Sender: FDA-Public Use
  Company Number: NL-ROCHE-679058

PATIENT
  Sex: Male

DRUGS (4)
  1. TAMIFLU [Suspect]
     Indication: INFLUENZA
     Route: 048
     Dates: start: 20091112
  2. TAMIFLU [Suspect]
     Route: 048
     Dates: start: 20091112, end: 20091117
  3. AERIUS [Concomitant]
     Route: 048
     Dates: start: 20090724
  4. FLIXOTIDE [Concomitant]
     Route: 055
     Dates: start: 20090901

REACTIONS (1)
  - CONVULSION [None]
